FAERS Safety Report 9674247 (Version 1)
Quarter: 2013Q4

REPORT INFORMATION
  Report Type: Spontaneous
  Country: US (occurrence: US)
  Receive Date: 20131107
  Receipt Date: 20131107
  Transmission Date: 20140711
  Serious: No
  Sender: FDA-Public Use
  Company Number: US-B.I. PHARMACEUTICALS,INC./RIDGEFIELD-2013-BI-34395BP

PATIENT
  Sex: Female

DRUGS (2)
  1. ATROVENT INHALATION SOLUTION [Suspect]
     Indication: CHRONIC OBSTRUCTIVE PULMONARY DISEASE
     Dosage: 68 MCG
     Route: 055
     Dates: start: 2007
  2. ADVAIR [Concomitant]
     Route: 055

REACTIONS (5)
  - Mouth ulceration [Recovered/Resolved]
  - Glossodynia [Not Recovered/Not Resolved]
  - Glossodynia [Not Recovered/Not Resolved]
  - Glossodynia [Not Recovered/Not Resolved]
  - Dental caries [Recovered/Resolved]
